FAERS Safety Report 4437590-9 (Version None)
Quarter: 2004Q3

REPORT INFORMATION
  Report Type: 
  Country: None (occurrence: None)
  Receive Date: 20040830
  Receipt Date: 20040830
  Transmission Date: 20050211
  Serious: Yes (Disabling)
  Sender: FDA-Public Use
  Company Number: None

PATIENT
  Age: 51 Year
  Sex: Female
  Weight: 104.3273 kg

DRUGS (1)
  1. PAXIL [Suspect]
     Indication: DEPRESSION
     Dosage: 20 MG 1 DAILY ORAL
     Route: 048
     Dates: start: 20020501, end: 20040701

REACTIONS (9)
  - CONFUSIONAL STATE [None]
  - DEPRESSION [None]
  - DIARRHOEA [None]
  - FATIGUE [None]
  - FOOD CRAVING [None]
  - INSOMNIA [None]
  - MOOD SWINGS [None]
  - MUSCLE CRAMP [None]
  - SUICIDAL IDEATION [None]
